FAERS Safety Report 19383632 (Version 1)
Quarter: 2021Q2

REPORT INFORMATION
  Report Type: Spontaneous
  Country: US (occurrence: US)
  Receive Date: 20210608
  Receipt Date: 20210608
  Transmission Date: 20210717
  Serious: Yes (Other)
  Sender: FDA-Public Use
  Company Number: US-AUROBINDO-AUR-APL-2014-00985

PATIENT
  Age: 56 Year
  Sex: Female

DRUGS (2)
  1. VITAMIN D [Concomitant]
     Active Substance: VITAMIN D NOS
     Indication: PRODUCT USED FOR UNKNOWN INDICATION
     Dosage: UNK
     Route: 065
  2. HYDROCHLOROTHIAZIDE. [Suspect]
     Active Substance: HYDROCHLOROTHIAZIDE
     Indication: HYPERCALCIURIA
     Dosage: 12.5 MILLIGRAM, DAILY
     Route: 065

REACTIONS (3)
  - Rash [Recovering/Resolving]
  - Cutaneous T-cell lymphoma [Recovering/Resolving]
  - Erythema [Recovering/Resolving]
